FAERS Safety Report 6396214-4 (Version None)
Quarter: 2009Q4

REPORT INFORMATION
  Report Type: 
  Country: None (occurrence: None)
  Receive Date: 20091011
  Receipt Date: 20091002
  Transmission Date: 20100525
  Serious: Yes (Other)
  Sender: FDA-Public Use
  Company Number: PHHY2009JP42671

PATIENT
  Age: 28 Year
  Sex: Female

DRUGS (1)
  1. VOLTAREN [Suspect]
     Dosage: 25MG DAILY
     Route: 048
     Dates: start: 20080701, end: 20080701

REACTIONS (2)
  - OCULOMUCOCUTANEOUS SYNDROME [None]
  - STEVENS-JOHNSON SYNDROME [None]
